FAERS Safety Report 12806355 (Version 1)
Quarter: 2016Q4

REPORT INFORMATION
  Report Type: Spontaneous
  Country: US (occurrence: US)
  Receive Date: 20161003
  Receipt Date: 20161003
  Transmission Date: 20170207
  Serious: No
  Sender: FDA-Public Use
  Company Number: None

PATIENT
  Age: 36 Year
  Sex: Female
  Weight: 56.25 kg

DRUGS (2)
  1. BENGAY ULTRA STRENGTH [Suspect]
     Active Substance: METHYL SALICYLATE
     Indication: MYALGIA
     Route: 061
     Dates: start: 20160601, end: 20160630
  2. MULTI-VITAMIN [Concomitant]
     Active Substance: .ALPHA.-TOCOPHEROL ACETATE, DL-\ASCORBIC ACID\CYANOCOBALAMIN\FLUORIDE ION\FOLIC ACID\NIACIN\PYRIDOXINE\RIBOFLAVIN\THIAMINE\VITAMIN A\VITAMIN D

REACTIONS (3)
  - Blister [None]
  - Feeling cold [None]
  - Accidental exposure to product [None]

NARRATIVE: CASE EVENT DATE: 20160623
